FAERS Safety Report 9123782 (Version 2)
Quarter: 2013Q1

REPORT INFORMATION
  Report Type: Report from Study
  Country: DE (occurrence: DE)
  Receive Date: 20130227
  Receipt Date: 20130319
  Transmission Date: 20140127
  Serious: Yes (Death, Hospitalization)
  Sender: FDA-Public Use
  Company Number: DE-ROCHE-1196008

PATIENT
  Age: 69 Year
  Sex: Male
  Weight: 73.3 kg

DRUGS (7)
  1. TRASTUZUMAB [Suspect]
     Indication: METASTATIC GASTRIC CANCER
     Route: 042
     Dates: start: 20130206, end: 20130206
  2. CARBOPLATIN [Suspect]
     Indication: METASTATIC GASTRIC CANCER
     Route: 042
     Dates: end: 20130211
  3. PACLITAXEL [Suspect]
     Indication: METASTATIC GASTRIC CANCER
     Route: 042
     Dates: end: 20130211
  4. TAVEGIL [Concomitant]
     Indication: PREMEDICATION
     Route: 042
     Dates: end: 20130211
  5. SOSTRIL [Concomitant]
     Indication: PREMEDICATION
     Route: 042
     Dates: end: 20130211
  6. DEXAMETHASON [Concomitant]
     Indication: PREMEDICATION
     Route: 042
     Dates: end: 20130211
  7. ZOFRAN [Concomitant]
     Indication: PREMEDICATION
     Route: 042
     Dates: end: 20130211

REACTIONS (1)
  - Renal failure [Fatal]
